FAERS Safety Report 6004241-1 (Version None)
Quarter: 2008Q4

REPORT INFORMATION
  Report Type: 
  Country: None (occurrence: None)
  Receive Date: 20081216
  Receipt Date: 20081211
  Transmission Date: 20090506
  Serious: Yes (Life-Threatening, Hospitalization, Other)
  Sender: FDA-Public Use
  Company Number: US-NOVOPROD-265123

PATIENT
  Age: 43 Year
  Sex: Female

DRUGS (4)
  1. NOVOSEVEN [Suspect]
     Indication: COAGULOPATHY
     Dosage: 6300 UG, UNK
     Route: 042
  2. FRESH FROZEN PLASMA [Concomitant]
     Indication: ANAPHYLACTOID SYNDROME OF PREGNANCY
  3. PLATELETS [Concomitant]
     Indication: ANAPHYLACTOID SYNDROME OF PREGNANCY
  4. NITRIC OXIDE [Concomitant]
     Indication: DRUG USE FOR UNKNOWN INDICATION
     Route: 055

REACTIONS (3)
  - PULMONARY HYPERTENSION [None]
  - RIGHT VENTRICULAR FAILURE [None]
  - THROMBOSIS [None]
